FAERS Safety Report 14895918 (Version 2)
Quarter: 2019Q3

REPORT INFORMATION
  Report Type: Spontaneous
  Country: PT (occurrence: PT)
  Receive Date: 20180515
  Receipt Date: 20190725
  Transmission Date: 20191004
  Serious: Yes (Hospitalization, Other)
  Sender: FDA-Public Use
  Company Number: PT-AUROBINDO-AUR-APL-2018-025456

PATIENT

DRUGS (8)
  1. AMOXICILLIN+CLAVULANIC ACID [Suspect]
     Active Substance: AMOXICILLIN\CLAVULANIC ACID
     Indication: ENDOCARDITIS CANDIDA
     Dosage: ()
     Route: 065
  2. GENTAMICIN. [Suspect]
     Active Substance: GENTAMICIN
     Indication: ENDOCARDITIS CANDIDA
     Dosage: UNK
     Route: 065
  3. AMPHOTERICIN B. [Concomitant]
     Active Substance: AMPHOTERICIN B
     Indication: CANDIDA INFECTION
     Dosage: UNK
     Route: 065
  4. VANCOMYCIN [Suspect]
     Active Substance: VANCOMYCIN
     Indication: ENDOCARDITIS CANDIDA
     Dosage: ()
     Route: 065
  5. LINEZOLID. [Concomitant]
     Active Substance: LINEZOLID
     Indication: NOSOCOMIAL INFECTION
  6. CIPROFLOXACIN. [Suspect]
     Active Substance: CIPROFLOXACIN
     Indication: ENDOCARDITIS CANDIDA
     Dosage: ()
     Route: 065
  7. FLUCONAZOLE. [Suspect]
     Active Substance: FLUCONAZOLE
     Indication: ENDOCARDITIS CANDIDA
     Dosage: 400 MG, QD
     Route: 042
  8. TRUVADA [Concomitant]
     Active Substance: EMTRICITABINE\TENOFOVIR DISOPROXIL FUMARATE
     Indication: HIV INFECTION
     Dosage: ()
     Route: 065

REACTIONS (8)
  - Condition aggravated [Recovered/Resolved]
  - Drug ineffective [Unknown]
  - Cardiac failure [Recovered/Resolved]
  - Mitral valve incompetence [Unknown]
  - Pulmonary valve disease [Unknown]
  - Aortic valve disease [Unknown]
  - Endocarditis candida [Recovered/Resolved]
  - Nosocomial infection [Unknown]
